FAERS Safety Report 7636706-0 (Version None)
Quarter: 2011Q3

REPORT INFORMATION
  Report Type: 
  Country: None (occurrence: None)
  Receive Date: 20110719
  Receipt Date: 20110707
  Transmission Date: 20111222
  Serious: Yes (Hospitalization)
  Sender: FDA-Public Use
  Company Number: DKLU1071894

PATIENT
  Age: 7 Month
  Sex: Female

DRUGS (4)
  1. TOPIRAMATE [Concomitant]
  2. CLONAZEPAM [Concomitant]
  3. SABRIL [Suspect]
     Indication: PRODUCT USED FOR UNKNOWN INDICATION
     Dosage: 500 MG MILLIGRAMS
     Dates: start: 20110624
  4. DEPAKOTE (VALPROATE SEMISODIIUM) [Concomitant]

REACTIONS (1)
  - RHINORRHOEA [None]
